FAERS Safety Report 14599759 (Version 4)
Quarter: 2018Q2

REPORT INFORMATION
  Report Type: Spontaneous
  Country: JP (occurrence: JP)
  Receive Date: 20180305
  Receipt Date: 20180503
  Transmission Date: 20180711
  Serious: Yes (Other)
  Sender: FDA-Public Use
  Company Number: JP-PFIZER INC-2018087291

PATIENT
  Age: 53 Year
  Sex: Female
  Weight: 58 kg

DRUGS (9)
  1. IBRANCE [Suspect]
     Active Substance: PALBOCICLIB
     Dosage: 100 MG, 1X/DAY
     Route: 048
     Dates: start: 20180307, end: 20180322
  2. IBRANCE [Suspect]
     Active Substance: PALBOCICLIB
     Indication: BREAST CANCER
     Dosage: 125 MG, 1X/DAY
     Route: 048
     Dates: start: 20180111, end: 20180124
  3. TAMOXIFEN [Suspect]
     Active Substance: TAMOXIFEN
     Indication: POSTOPERATIVE CARE
     Dosage: 20 MG, 1X/DAY
     Route: 048
     Dates: start: 20150713, end: 20171018
  4. HERCEPTIN [Concomitant]
     Active Substance: TRASTUZUMAB
     Dosage: 366 MG, 1X/DAY
     Route: 041
     Dates: start: 20150126, end: 20150309
  5. HERCEPTIN [Concomitant]
     Active Substance: TRASTUZUMAB
     Dosage: 366 MG, 1X/DAY
     Route: 041
     Dates: start: 20150510, end: 20160418
  6. LETROZOLE. [Suspect]
     Active Substance: LETROZOLE
     Indication: POSTOPERATIVE CARE
     Dosage: 2.5 MG, 1X/DAY
     Route: 048
     Dates: start: 20171019
  7. HERCEPTIN [Concomitant]
     Active Substance: TRASTUZUMAB
     Indication: CHEMOTHERAPY
     Dosage: 488 MG, 1X/DAY
     Route: 041
     Dates: start: 20150105, end: 20150105
  8. IBRANCE [Suspect]
     Active Substance: PALBOCICLIB
     Dosage: 100 MG, 1X/DAY
     Route: 048
     Dates: start: 20180208, end: 20180221
  9. DOCETAXEL. [Suspect]
     Active Substance: DOCETAXEL
     Indication: PREOPERATIVE CARE
     Dosage: 122 MG, 1X/DAY
     Route: 041
     Dates: start: 20150105, end: 20150309

REACTIONS (4)
  - Oedema [Recovered/Resolved]
  - Neutrophil count decreased [Recovered/Resolved]
  - Conjunctival haemorrhage [Recovered/Resolved]
  - Dysgeusia [Recovering/Resolving]

NARRATIVE: CASE EVENT DATE: 20180124
